FAERS Safety Report 7197823-5 (Version None)
Quarter: 2010Q4

REPORT INFORMATION
  Report Type: 
  Country: None (occurrence: None)
  Receive Date: 20101227
  Receipt Date: 20101221
  Transmission Date: 20110411
  Serious: Yes (Other)
  Sender: FDA-Public Use
  Company Number: BR-SANOFI-AVENTIS-2010SA077524

PATIENT
  Age: 71 Year
  Sex: Female

DRUGS (8)
  1. LANTUS [Suspect]
     Route: 058
  2. OPTIPEN [Suspect]
  3. HUMALOG [Concomitant]
     Dosage: 4 IU AT LUNCHAND AT DINNER
  4. ASPIRIN [Concomitant]
     Indication: PROPHYLAXIS
  5. ATENOLOL [Concomitant]
  6. CIPROFIBRATE [Concomitant]
  7. ALL OTHER THERAPEUTIC PRODUCTS [Concomitant]
  8. ALL OTHER THERAPEUTIC PRODUCTS [Concomitant]

REACTIONS (2)
  - CARDIAC DISORDER [None]
  - PAIN IN EXTREMITY [None]
